FAERS Safety Report 5849027-3 (Version None)
Quarter: 2008Q3

REPORT INFORMATION
  Report Type: 
  Country: None (occurrence: None)
  Receive Date: 20080815
  Receipt Date: 20080808
  Transmission Date: 20090109
  Serious: Yes (Other)
  Sender: FDA-Public Use
  Company Number: 2008JP003531

PATIENT
  Age: 94 Year
  Sex: Female

DRUGS (10)
  1. FUNGUARD(MICAFUNGIN) INJECTION [Suspect]
     Dosage: 50 MG, D, IV DIRP
     Route: 041
     Dates: start: 20080723
  2. LANSOPRAZOLE [Suspect]
     Dosage: 30 MG, D, ORAL
     Route: 048
  3. NORVASC [Concomitant]
  4. SERMION (NICERGOLINE) [Concomitant]
  5. BIOFERMIN R (STREPTOCOCCUS FAECALIS) [Concomitant]
  6. ASPIRIN [Concomitant]
  7. SIGMART (NICORANDIL) [Concomitant]
  8. AMARYL [Concomitant]
  9. BASEN (VOGLIBOSE) ORODISPERSIBLE CR TABLET [Concomitant]
  10. ISOSORBIDE DINITRATE [Concomitant]

REACTIONS (1)
  - PSEUDOMEMBRANOUS COLITIS [None]
